FAERS Safety Report 13733965 (Version 5)
Quarter: 2021Q1

REPORT INFORMATION
  Report Type: Report from Study
  Country: JP (occurrence: JP)
  Receive Date: 20170708
  Receipt Date: 20210308
  Transmission Date: 20210419
  Serious: Yes (Hospitalization, Other)
  Sender: FDA-Public Use
  Company Number: JP-AMGEN-JPNCT2016184490

PATIENT
  Age: 67 Year
  Sex: Male
  Weight: 70.1 kg

DRUGS (26)
  1. PANITUMUMAB [Suspect]
     Active Substance: PANITUMUMAB
     Dosage: 3.6 MG/KG, Q2WK
     Route: 041
     Dates: start: 20170727, end: 20170727
  2. MYSER [DIFLUPREDNATE] [Concomitant]
     Indication: ECZEMA
     Dosage: UNK UNK, BID
     Route: 062
     Dates: start: 20161025
  3. OXALIPLATIN. [Suspect]
     Active Substance: OXALIPLATIN
     Dosage: 150 MILLIGRAM, Q2WEEKS
     Route: 041
     Dates: start: 20170202, end: 20170202
  4. CALCIUM LEVOFOLINATE [Suspect]
     Active Substance: LEVOLEUCOVORIN CALCIUM
     Dosage: 300 MILLIGRAM, Q2WEEKS
     Route: 041
     Dates: start: 20170202, end: 20170202
  5. 5?FU [FLUOROURACIL] [Suspect]
     Active Substance: FLUOROURACIL
     Dosage: 4200 MILLIGRAM, Q2WEEKS
     Route: 041
     Dates: start: 20161025, end: 20170105
  6. 5?FU [FLUOROURACIL] [Suspect]
     Active Substance: FLUOROURACIL
     Dosage: 4200 MILLIGRAM, Q2WEEKS
     Route: 041
     Dates: start: 20170629, end: 20170727
  7. 5?FU [FLUOROURACIL] [Suspect]
     Active Substance: FLUOROURACIL
     Dosage: UNK
     Route: 040
     Dates: start: 20171019, end: 20190124
  8. AMLODIPINE [Concomitant]
     Active Substance: AMLODIPINE BESYLATE
     Indication: HYPERTENSION
     Dosage: 5 MG, UNK
     Route: 048
     Dates: start: 20161028
  9. PANITUMUMAB [Suspect]
     Active Substance: PANITUMUMAB
     Indication: RECTAL CANCER STAGE IV
     Dosage: 430 MG, Q2WK
     Route: 041
     Dates: start: 20161025, end: 20170105
  10. 5?FU [FLUOROURACIL] [Suspect]
     Active Substance: FLUOROURACIL
     Indication: RECTAL CANCER STAGE IV
     Dosage: 700 MILLIGRAM, Q2WEEKS
     Route: 040
     Dates: start: 20161025, end: 20170105
  11. 5?FU [FLUOROURACIL] [Suspect]
     Active Substance: FLUOROURACIL
     Dosage: UNK
     Route: 041
     Dates: start: 20190207
  12. SLOW K [Concomitant]
     Active Substance: POTASSIUM CHLORIDE
     Indication: DIARRHOEA
     Dosage: 1200 MG, UNK
     Route: 048
     Dates: start: 20170525
  13. 5?FU [FLUOROURACIL] [Suspect]
     Active Substance: FLUOROURACIL
     Dosage: UNK
     Route: 040
     Dates: start: 20190207
  14. URSODEOXYCHOLIC ACID [Concomitant]
     Active Substance: URSODIOL
     Indication: CHOLELITHIASIS
     Dosage: 300 MG, UNK
     Route: 048
     Dates: start: 20161208
  15. MINOCYCLINE HYDROCHLORIDE. [Concomitant]
     Active Substance: MINOCYCLINE HYDROCHLORIDE
     Indication: INFECTION
     Dosage: UNK UNK, QD
     Route: 048
     Dates: start: 20161208
  16. 5?FU [FLUOROURACIL] [Suspect]
     Active Substance: FLUOROURACIL
     Dosage: 700 MILLIGRAM, Q2WK
     Route: 040
     Dates: start: 20170202, end: 20170525
  17. 5?FU [FLUOROURACIL] [Suspect]
     Active Substance: FLUOROURACIL
     Dosage: UNK
     Route: 041
     Dates: start: 20171019, end: 20190124
  18. DRENISON [FLUDROXYCORTIDE] [Concomitant]
     Indication: DERMATITIS
     Dosage: 1 DOSAGE FORM, UNK
     Route: 062
     Dates: start: 20161222
  19. PANITUMUMAB [Suspect]
     Active Substance: PANITUMUMAB
     Dosage: 430 MG, Q2WK
     Route: 041
     Dates: start: 20170202, end: 20170216
  20. PANITUMUMAB [Suspect]
     Active Substance: PANITUMUMAB
     Dosage: 320 MG, Q2WK
     Route: 041
     Dates: start: 20170316, end: 20170316
  21. PANITUMUMAB [Suspect]
     Active Substance: PANITUMUMAB
     Dosage: 3.6 MG/KG, Q2WK
     Route: 041
     Dates: start: 20170427, end: 20170525
  22. OXALIPLATIN. [Suspect]
     Active Substance: OXALIPLATIN
     Indication: RECTAL CANCER STAGE IV
     Dosage: 150 MILLIGRAM, Q2WEEKS
     Route: 041
     Dates: start: 20161025, end: 20170105
  23. 5?FU [FLUOROURACIL] [Suspect]
     Active Substance: FLUOROURACIL
     Dosage: 4200 MILLIGRAM, Q2WEEKS
     Route: 041
     Dates: start: 20170202, end: 20170525
  24. 5?FU [FLUOROURACIL] [Suspect]
     Active Substance: FLUOROURACIL
     Dosage: 700 MILLIGRAM, Q2WK
     Route: 040
     Dates: start: 20170629, end: 20170727
  25. PANITUMUMAB [Suspect]
     Active Substance: PANITUMUMAB
     Dosage: 3.6 MG/KG, Q2WK
     Route: 041
     Dates: start: 20170629, end: 20170629
  26. CALCIUM LEVOFOLINATE [Suspect]
     Active Substance: LEVOLEUCOVORIN CALCIUM
     Indication: RECTAL CANCER STAGE IV
     Dosage: 300 MILLIGRAM, Q2WEEKS
     Route: 041
     Dates: start: 20161025, end: 20170105

REACTIONS (15)
  - Hypokalaemia [Recovered/Resolved]
  - Pancreatic enzymes increased [Recovered/Resolved]
  - Skin fissures [Recovered/Resolved]
  - Pruritus [Recovered/Resolved]
  - Fatigue [Recovered/Resolved]
  - Dry skin [Recovered/Resolved]
  - Stomatitis [Recovered/Resolved]
  - Paronychia [Recovered/Resolved]
  - Peripheral sensory neuropathy [Not Recovered/Not Resolved]
  - Angular cheilitis [Recovered/Resolved]
  - Malaise [Recovered/Resolved]
  - Dermatitis acneiform [Not Recovered/Not Resolved]
  - Herpes zoster [Recovering/Resolving]
  - Peripheral sensory neuropathy [Recovered/Resolved]
  - Decreased appetite [Recovered/Resolved]

NARRATIVE: CASE EVENT DATE: 20170608
